FAERS Safety Report 6835659-2 (Version None)
Quarter: 2010Q3

REPORT INFORMATION
  Report Type: 
  Country: None (occurrence: None)
  Receive Date: 20100713
  Receipt Date: 20100704
  Transmission Date: 20110219
  Serious: Yes (Other)
  Sender: FDA-Public Use
  Company Number: NL-PFIZER INC-2010084320

PATIENT

DRUGS (1)
  1. LIPITOR [Suspect]
     Dosage: 40 UNK, UNK

REACTIONS (1)
  - ABASIA [None]
